FAERS Safety Report 8223457-7 (Version None)
Quarter: 2012Q1

REPORT INFORMATION
  Report Type: 
  Country: None (occurrence: None)
  Receive Date: 20120316
  Receipt Date: 20120302
  Transmission Date: 20120608
  Serious: Yes (Other)
  Sender: FDA-Public Use
  Company Number: 2012MA003230

PATIENT
  Age: 50 Year
  Sex: Male

DRUGS (21)
  1. CITALOPRAM HYDROBROMIDE [Suspect]
     Indication: ANTIDEPRESSANT THERAPY
     Dosage: 40 MG;
  2. ZOPICLONE (ZOPICLONE) [Suspect]
  3. ACETAMINOPHEN AND CODEINE PHOSPHATE [Suspect]
  4. ATORVASTATIN [Concomitant]
  5. DIGOXIN [Concomitant]
  6. ZOLPIDEM TARTRATE [Suspect]
     Dosage: 15 MG;
  7. ENBREL [Concomitant]
  8. STELARA [Concomitant]
  9. DILTIAZEM HCL [Concomitant]
  10. HUMIRA [Concomitant]
  11. DULOXETIME HYDROCHLORIDE [Concomitant]
  12. METHOTREXATE [Suspect]
     Dosage: 10 MG;
  13. PERINDOPRIL ERBUMINE [Concomitant]
  14. INFLIXIMAB [Concomitant]
  15. PHENERGAN HCL [Concomitant]
  16. SOTALOL HCL [Suspect]
     Indication: ATRIAL FIBRILLATION
  17. FOLIC ACID [Concomitant]
  18. WARFARIN SODIUM [Suspect]
  19. VITAMIN D [Concomitant]
  20. DIAZEPAM [Suspect]
     Indication: BACK PAIN
     Dosage: 10 MG;
  21. PREGABALIN [Concomitant]

REACTIONS (8)
  - DRUG DEPENDENCE [None]
  - SKIN PAPILLOMA [None]
  - SKIN EXFOLIATION [None]
  - IMMUNE SYSTEM DISORDER [None]
  - SKIN HAEMORRHAGE [None]
  - DRUG INEFFECTIVE [None]
  - PSORIASIS [None]
  - CONFUSIONAL STATE [None]
